FAERS Safety Report 4843113-2 (Version None)
Quarter: 2005Q4

REPORT INFORMATION
  Report Type: 
  Country: None (occurrence: None)
  Receive Date: 20051027
  Receipt Date: 20050728
  Transmission Date: 20060501
  Serious: No
  Sender: FDA-Public Use
  Company Number: 2005IP000207

PATIENT
  Age: 79 Year
  Sex: Female

DRUGS (6)
  1. XIBROM [Suspect]
     Indication: EYE INFLAMMATION
     Dosage: 1 GTT; BID, OPH
     Route: 047
     Dates: start: 20050705, end: 20050705
  2. ECONOPRED PLUS [Concomitant]
  3. VIGAMOX [Concomitant]
  4. EVISTA [Concomitant]
  5. ZOCOR [Concomitant]
  6. ASPIRIN [Concomitant]

REACTIONS (1)
  - VISUAL ACUITY REDUCED [None]
